FAERS Safety Report 18129048 (Version 1)
Quarter: 2020Q3

REPORT INFORMATION
  Report Type: Spontaneous
  Country: US (occurrence: US)
  Receive Date: 20200808
  Receipt Date: 20200808
  Transmission Date: 20201103
  Serious: No
  Sender: FDA-Public Use
  Company Number: None

PATIENT
  Age: 33 Year
  Sex: Female
  Weight: 99 kg

DRUGS (5)
  1. LXR BIOTECH [Suspect]
     Active Substance: ALCOHOL
     Indication: COVID-19 PROPHYLAXIS
     Dosage: ?          QUANTITY:1 V/V;?
     Route: 061
     Dates: start: 20200719, end: 20200720
  2. VITAMIN D [Concomitant]
     Active Substance: VITAMIN D NOS
  3. IBUPROFEN. [Concomitant]
     Active Substance: IBUPROFEN
  4. VITAFOL PRENATAL [Concomitant]
  5. PANTOPRAZOLE [Concomitant]
     Active Substance: PANTOPRAZOLE

REACTIONS (1)
  - Hypoaesthesia [None]

NARRATIVE: CASE EVENT DATE: 20200720
